FAERS Safety Report 6908875-9 (Version None)
Quarter: 2010Q3

REPORT INFORMATION
  Report Type: 
  Country: None (occurrence: None)
  Receive Date: 20100805
  Receipt Date: 20100727
  Transmission Date: 20110219
  Serious: Yes (Hospitalization)
  Sender: FDA-Public Use
  Company Number: JP-EISAI INC.-E2090-00583-SPO-JP

PATIENT
  Sex: Male
  Weight: 64 kg

DRUGS (3)
  1. EXCEGRAN [Suspect]
     Route: 048
     Dates: start: 20070602, end: 20070703
  2. AMLODIPINE BESYLATE [Concomitant]
     Indication: HYPERTENSION
     Route: 048
     Dates: start: 20070602, end: 20070702
  3. PAXIL [Concomitant]
     Route: 048
     Dates: start: 20070622, end: 20070702

REACTIONS (1)
  - DRUG RASH WITH EOSINOPHILIA AND SYSTEMIC SYMPTOMS [None]
